FAERS Safety Report 10184044 (Version 3)
Quarter: 2015Q3

REPORT INFORMATION
  Report Type: Spontaneous
  Country: JP (occurrence: JP)
  Receive Date: 20140520
  Receipt Date: 20150803
  Transmission Date: 20151125
  Serious: Yes (Life-Threatening, Other)
  Sender: FDA-Public Use
  Company Number: JP-GLAXOSMITHKLINE-B0994553A

PATIENT
  Sex: Female
  Weight: 43 kg

DRUGS (1)
  1. FONDAPARINUX SODIUM. [Suspect]
     Active Substance: FONDAPARINUX SODIUM
     Indication: PROPHYLAXIS
     Route: 058

REACTIONS (4)
  - Anaemia [Unknown]
  - Mesenteric haemorrhage [Recovering/Resolving]
  - Shock haemorrhagic [Unknown]
  - Tachycardia [Unknown]
